FAERS Safety Report 4566862-2 (Version None)
Quarter: 2005Q1

REPORT INFORMATION
  Report Type: 
  Country: None (occurrence: None)
  Receive Date: 20050201
  Receipt Date: 20020418
  Transmission Date: 20050727
  Serious: Yes (Other)
  Sender: FDA-Public Use
  Company Number: US-BRISTOL-MYERS SQUIBB COMPANY-11842374

PATIENT
  Age: 31 Year
  Sex: Female

DRUGS (1)
  1. STADOL [Suspect]
     Route: 045
     Dates: start: 19940610, end: 19980827

REACTIONS (17)
  - ANXIETY [None]
  - ASTHENIA [None]
  - CONSTIPATION [None]
  - CONVULSION [None]
  - DEPENDENCE [None]
  - DYSPNOEA [None]
  - DYSURIA [None]
  - HEART RATE IRREGULAR [None]
  - HYPOAESTHESIA [None]
  - HYPOTENSION [None]
  - INSOMNIA [None]
  - NASAL CONGESTION [None]
  - NAUSEA [None]
  - SYNCOPE [None]
  - TINNITUS [None]
  - VISION BLURRED [None]
  - VOMITING [None]
